FAERS Safety Report 5347413-1 (Version None)
Quarter: 2007Q2

REPORT INFORMATION
  Report Type: 
  Country: None (occurrence: None)
  Receive Date: 20070507
  Receipt Date: 20060516
  Transmission Date: 20071010
  Serious: Yes (Life-Threatening)
  Sender: FDA-Public Use
  Company Number: 2182

PATIENT
  Age: 61 Year
  Sex: Female

DRUGS (2)
  1. AVINZA [Suspect]
     Dosage: 60 MG DAILY PO
     Route: 048
     Dates: start: 20060426, end: 20060501
  2. BENZODIAZEPINE [Concomitant]

REACTIONS (1)
  - DYSPNOEA [None]
